FAERS Safety Report 20343397 (Version 1)
Quarter: 2022Q1

REPORT INFORMATION
  Report Type: Spontaneous
  Country: SA (occurrence: SA)
  Receive Date: 20220118
  Receipt Date: 20220118
  Transmission Date: 20220423
  Serious: Yes (Other)
  Sender: FDA-Public Use
  Company Number: SA-CELLTRION INC.-2022SA000311

PATIENT

DRUGS (5)
  1. RITUXIMAB [Suspect]
     Active Substance: RITUXIMAB
     Indication: Granulomatosis with polyangiitis
     Dosage: 500 MG, Q2WEEKS FOR 4 DOSES
     Route: 042
  2. METHYLPREDNISOLONE [Suspect]
     Active Substance: METHYLPREDNISOLONE
     Indication: Granulomatosis with polyangiitis
     Dosage: THREE TIMES A MONTH FOR 3 MONTHS
     Route: 042
  3. METHOTREXATE [Suspect]
     Active Substance: METHOTREXATE
     Indication: Granulomatosis with polyangiitis
     Dosage: 25 MG, ONCE A WEEK
  4. PREDNISOLONE [Suspect]
     Active Substance: PREDNISOLONE
     Indication: Granulomatosis with polyangiitis
     Dosage: 50 MG
     Route: 048
  5. MYCOPHENOLATE MOFETIL [Suspect]
     Active Substance: MYCOPHENOLATE MOFETIL
     Indication: Granulomatosis with polyangiitis
     Dosage: 2 G, DAILY

REACTIONS (6)
  - Aspergillus infection [Unknown]
  - Aspergillus infection [Unknown]
  - Type 2 diabetes mellitus [Unknown]
  - Hypersensitivity [Unknown]
  - Granulomatosis with polyangiitis [Unknown]
  - Disease progression [Unknown]

NARRATIVE: CASE EVENT DATE: 20200917
